FAERS Safety Report 16153603 (Version 1)
Quarter: 2019Q2

REPORT INFORMATION
  Report Type: Spontaneous
  Country: AE (occurrence: AE)
  Receive Date: 20190403
  Receipt Date: 20190403
  Transmission Date: 20190711
  Serious: Yes (Other)
  Sender: FDA-Public Use
  Company Number: AE-BIOVITRUM-2019AE0620

PATIENT
  Age: 12 Year
  Sex: Female

DRUGS (10)
  1. METHYLPREDNISOLONE. [Concomitant]
     Active Substance: METHYLPREDNISOLONE
     Route: 042
  2. STEROIDS [Concomitant]
     Active Substance: UNSPECIFIED INGREDIENT
  3. CYCLOSPORIN [Concomitant]
     Active Substance: CYCLOSPORINE
  4. ETANERCEPT [Concomitant]
     Active Substance: ETANERCEPT
  5. TOCILIZUMAB. [Concomitant]
     Active Substance: TOCILIZUMAB
  6. CYCLOPHOSPHAMIDE. [Concomitant]
     Active Substance: CYCLOPHOSPHAMIDE
  7. METHOTREXATE. [Concomitant]
     Active Substance: METHOTREXATE
     Dosage: 15MG/M2 WEEKLY
  8. ANAKINRA [Suspect]
     Active Substance: ANAKINRA
     Indication: HAEMOPHAGOCYTIC LYMPHOHISTIOCYTOSIS
  9. ANAKINRA [Suspect]
     Active Substance: ANAKINRA
     Indication: STILL^S DISEASE
  10. PREDNISOLONE. [Concomitant]
     Active Substance: PREDNISOLONE
     Route: 048

REACTIONS (2)
  - Drug ineffective [Unknown]
  - Haemophagocytic lymphohistiocytosis [Unknown]
